FAERS Safety Report 5910575-9 (Version None)
Quarter: 2008Q4

REPORT INFORMATION
  Report Type: 
  Country: None (occurrence: None)
  Receive Date: 20081007
  Receipt Date: 20080325
  Transmission Date: 20090506
  Serious: Yes (Other)
  Sender: FDA-Public Use
  Company Number: US-ASTRAZENECA-2008UW05940

PATIENT
  Sex: Female

DRUGS (1)
  1. ARIMIDEX [Suspect]
     Route: 048

REACTIONS (1)
  - STEVENS-JOHNSON SYNDROME [None]
